FAERS Safety Report 10190768 (Version 3)
Quarter: 2014Q2

REPORT INFORMATION
  Report Type: Spontaneous
  Country: US (occurrence: US)
  Receive Date: 20140523
  Receipt Date: 20140616
  Transmission Date: 20141212
  Serious: No
  Sender: FDA-Public Use
  Company Number: US-009507513-1405USA010985

PATIENT
  Age: 81 Year
  Sex: Female
  Weight: 61.22 kg

DRUGS (3)
  1. MIRALAX [Suspect]
     Indication: CONSTIPATION
     Dosage: 17 G, QD
     Route: 048
     Dates: start: 20140508, end: 20140509
  2. AMLODIPINE BESYLATE [Concomitant]
     Indication: HYPERTENSION
     Dosage: UNK UNK, UNKNOWN
  3. LOSARTAN POTASSIUM [Concomitant]
     Indication: HYPERTENSION
     Dosage: UNK, UNKNOWN

REACTIONS (4)
  - Tinnitus [Recovered/Resolved]
  - Hallucination, visual [Recovered/Resolved]
  - Feeling abnormal [Unknown]
  - Feeling hot [Unknown]
